FAERS Safety Report 8816786 (Version 1)
Quarter: 2012Q4

REPORT INFORMATION
  Report Type: Spontaneous
  Country: US (occurrence: None)
  Receive Date: 20121001
  Receipt Date: 20121001
  Transmission Date: 20130627
  Serious: Yes (Other)
  Sender: FDA-Public Use
  Company Number: 2012-01398

PATIENT
  Weight: 57.1 kg

DRUGS (2)
  1. LOSARTAN [Suspect]
     Indication: HYPERTENSION
     Route: 048
     Dates: start: 20120815, end: 20120901
  2. FELODIPINE [Concomitant]

REACTIONS (3)
  - Chapped lips [None]
  - Lip swelling [None]
  - Oedema mouth [None]
